FAERS Safety Report 5643441-7 (Version None)
Quarter: 2008Q1

REPORT INFORMATION
  Report Type: 
  Country: None (occurrence: None)
  Receive Date: 20080226
  Receipt Date: 20080213
  Transmission Date: 20080703
  Serious: Yes (Disabling)
  Sender: FDA-Public Use
  Company Number: 100#03#2008-00877

PATIENT
  Age: 64 Year
  Sex: Male

DRUGS (8)
  1. CITALOPRAM HYDROBROMIDE [Suspect]
     Indication: DEPRESSION
     Dosage: 20 MG
     Dates: start: 20070925
  2. ACETYLSALICYLIC ACID SRT [Concomitant]
  3. BENDROFLUMETHIAZIDE (BENDROFLUAZIDE) [Concomitant]
  4. CO-DYDRAMOL (DIHYDROCODEINE, PARACETAMOL) [Concomitant]
  5. HYDROXOCOBALAMIN (HYDROXOCOBALAMIN) [Concomitant]
  6. RAMIPRIL [Concomitant]
  7. TIBOLONE (TIBOLONE) [Concomitant]
  8. VERAPAMIL [Concomitant]

REACTIONS (3)
  - GAIT DISTURBANCE [None]
  - MUSCULAR WEAKNESS [None]
  - PAIN [None]
